FAERS Safety Report 9216564 (Version 1)
Quarter: 2013Q2

REPORT INFORMATION
  Report Type: Spontaneous
  Country: US (occurrence: None)
  Receive Date: 20130403
  Receipt Date: 20130403
  Transmission Date: 20140414
  Serious: Yes (Hospitalization)
  Sender: FDA-Public Use
  Company Number: UTC-030810

PATIENT
  Age: 79 Year
  Sex: Male

DRUGS (1)
  1. REMODULIN (INJECTION FOR INFUSION) (TREPROSTINIL SODIUM) [Suspect]
     Indication: PULMONARY ARTERIAL HYPERTENSION
     Dosage: 10.08 UG/KG (0.007 UG//KG, 1 IN 1 MIN), INTRAVENOUS
     Route: 042
     Dates: start: 20130320

REACTIONS (3)
  - Pruritus [None]
  - Flushing [None]
  - Blood urine present [None]
